FAERS Safety Report 7479421-9 (Version None)
Quarter: 2011Q2

REPORT INFORMATION
  Report Type: 
  Country: None (occurrence: None)
  Receive Date: 20110513
  Receipt Date: 20110415
  Transmission Date: 20111010
  Serious: Yes (Death, Other)
  Sender: FDA-Public Use
  Company Number: US-BAYER-201020391NA

PATIENT
  Age: 82 Year
  Sex: Female
  Weight: 69.841 kg

DRUGS (19)
  1. OMNISCAN [Suspect]
     Indication: DIAGNOSTIC PROCEDURE
  2. OPTIMARK [Suspect]
     Indication: DIAGNOSTIC PROCEDURE
  3. LOTREL [Concomitant]
     Dosage: 5/10 MG NIGHTLY
  4. CYPROHEPTADINE HCL [Concomitant]
     Dosage: 4 MG , 4 TIMES DAILY
  5. PLAVIX [Concomitant]
     Dosage: 75 MG DAILY
  6. HYDROCHLOROTHIAZIDE [Concomitant]
     Dosage: 25 MG DAILY
  7. XALATAN [Concomitant]
  8. COSOPT [Concomitant]
  9. MULTIHANCE [Suspect]
     Indication: DIAGNOSTIC PROCEDURE
  10. MULTIVITAMINS AND IRON [Concomitant]
  11. MELOXICAM [Concomitant]
     Indication: ARTHRITIS
  12. PROHANCE [Suspect]
     Indication: DIAGNOSTIC PROCEDURE
  13. CONTRAST MEDIA [Suspect]
     Indication: PRODUCT USED FOR UNKNOWN INDICATION
  14. COLCHICINE [Concomitant]
  15. AMLODIPINE W/BENAZEPRIL [Concomitant]
  16. ASPIRIN [Concomitant]
     Dosage: 81 MG DAILY
  17. ALPHAGAN [Concomitant]
  18. MAGNEVIST [Suspect]
     Indication: DIAGNOSTIC PROCEDURE
  19. LOVENOX [Concomitant]

REACTIONS (16)
  - NEPHROGENIC SYSTEMIC FIBROSIS [None]
  - MUSCULAR WEAKNESS [None]
  - MUSCLE TIGHTNESS [None]
  - SKIN DISCOLOURATION [None]
  - SKIN PLAQUE [None]
  - OEDEMA PERIPHERAL [None]
  - ASTHENIA [None]
  - JOINT RANGE OF MOTION DECREASED [None]
  - SKIN HYPERPIGMENTATION [None]
  - PAIN [None]
  - HYPOAESTHESIA [None]
  - MUSCULOSKELETAL STIFFNESS [None]
  - SKIN INDURATION [None]
  - PRURITUS GENERALISED [None]
  - SKIN TIGHTNESS [None]
  - DEFORMITY [None]
